FAERS Safety Report 15707404 (Version 1)
Quarter: 2018Q4

REPORT INFORMATION
  Report Type: Spontaneous
  Country: GB (occurrence: GB)
  Receive Date: 20181211
  Receipt Date: 20181211
  Transmission Date: 20190205
  Serious: Yes (Disabling)
  Sender: FDA-Public Use
  Company Number: GB-TEVA-2018-GB-984338

PATIENT
  Age: 72 Year
  Sex: Female
  Weight: 70 kg

DRUGS (7)
  1. LEFLUNOMIDE. [Suspect]
     Active Substance: LEFLUNOMIDE
     Dosage: 10 MILLIGRAM DAILY;
     Route: 065
     Dates: start: 20181003, end: 20181108
  2. TIMOLOL. [Concomitant]
     Active Substance: TIMOLOL
     Dosage: 1 GTT DAILY;
     Route: 065
     Dates: start: 20171106
  3. ADCAL [Concomitant]
     Active Substance: CALCIUM CARBONATE
     Dosage: 2 DOSAGE FORMS DAILY;
     Route: 065
     Dates: start: 20171219
  4. ALENDRONIC ACID [Concomitant]
     Active Substance: ALENDRONIC ACID
     Route: 065
     Dates: start: 20171106
  5. PREDNISOLONE. [Concomitant]
     Active Substance: PREDNISOLONE
     Dosage: AS DIRECTED
     Dates: start: 20180924
  6. HYLO-FORTE [Concomitant]
     Active Substance: HYALURONATE SODIUM
     Dosage: 5 DOSAGE FORMS DAILY; BOTH EYES
     Route: 065
     Dates: start: 20180201
  7. TRAVOPROST. [Concomitant]
     Active Substance: TRAVOPROST
     Dosage: 1 GTT DAILY;
     Route: 065
     Dates: start: 20171219

REACTIONS (4)
  - Tachycardia [Unknown]
  - Abdominal discomfort [Unknown]
  - Nausea [Unknown]
  - Blood pressure increased [Unknown]
